FAERS Safety Report 6177730-7 (Version None)
Quarter: 2009Q2

REPORT INFORMATION
  Report Type: 
  Country: None (occurrence: None)
  Receive Date: 20090504
  Receipt Date: 20090428
  Transmission Date: 20091009
  Serious: Yes (Hospitalization)
  Sender: FDA-Public Use
  Company Number: US-BAXTER-2009BH007035

PATIENT
  Age: 56 Year
  Sex: Female

DRUGS (1)
  1. SODIUM CHLORIDE [Suspect]
     Indication: INTRAVENOUS CATHETER MANAGEMENT
     Route: 042
     Dates: start: 20090403, end: 20090403

REACTIONS (2)
  - RASH [None]
  - URTICARIA [None]
